FAERS Safety Report 4300227-3 (Version None)
Quarter: 2004Q1

REPORT INFORMATION
  Report Type: 
  Country: None (occurrence: None)
  Receive Date: 20040218
  Receipt Date: 20040213
  Transmission Date: 20041129
  Serious: Yes (Hospitalization)
  Sender: FDA-Public Use
  Company Number: STA-AE-04-MTX-059

PATIENT
  Age: 45 Year
  Sex: Male

DRUGS (16)
  1. RHEUMATREX [Suspect]
     Indication: RHEUMATOID ARTHRITIS
     Dosage: 4MG 1X PER 1 WK, ORAL
     Route: 048
     Dates: start: 20011218, end: 20020306
  2. RHEUMATREX [Suspect]
     Indication: RHEUMATOID ARTHRITIS
     Dosage: 6 MG 1 X PER 1 WK, ORAL
     Route: 048
     Dates: start: 20020313, end: 20020503
  3. RHEUMATREX [Suspect]
     Indication: RHEUMATOID ARTHRITIS
     Dosage: 8 MG 1X PER 1 WK, ORAL
     Route: 048
     Dates: start: 20020510, end: 20030116
  4. RHEUMATREX [Suspect]
     Indication: RHEUMATOID ARTHRITIS
     Dosage: 8 MG 1X PER 1 WK, ORAL
     Route: 048
     Dates: start: 20030513, end: 20030717
  5. RHEUMATREX [Suspect]
     Indication: RHEUMATOID ARTHRITIS
     Dosage: 4 MG 1X PER 1 WK, ORAL
     Route: 048
     Dates: start: 20030718
  6. METHOTREXATE [Suspect]
     Indication: RHEUMATOID ARTHRITIS
     Dosage: 10MG 1X PER 1 WK, ORAL
     Route: 048
     Dates: start: 20030214, end: 20030221
  7. METHOTREXATE [Suspect]
     Indication: RHEUMATOID ARTHRITIS
     Dosage: 10 MG 1X PER 1 WK, ORAL
     Route: 048
     Dates: start: 20030318, end: 20030512
  8. SALAZOSULFAPYRIDINE (SULFASALAZINE) [Concomitant]
  9. VOLTAREN [Concomitant]
  10. EUGLUCAN (GLIBENCLAMIDE) [Concomitant]
  11. PREDNISOLONE [Concomitant]
  12. ALLOPURINOL [Concomitant]
  13. PERSANTINE [Concomitant]
  14. AZULFIDINE [Concomitant]
  15. LANSOPRAZOLE [Concomitant]
  16. FOLIAMIN (FOLIC ACID) [Concomitant]

REACTIONS (12)
  - ANAEMIA [None]
  - BLOOD PRESSURE DECREASED [None]
  - CHILLS [None]
  - COLD SWEAT [None]
  - HYPERHIDROSIS [None]
  - INFLUENZA LIKE ILLNESS [None]
  - LEUKOPENIA [None]
  - LIVER DISORDER [None]
  - NASOPHARYNGITIS [None]
  - RHEUMATOID ARTHRITIS [None]
  - STOMATITIS [None]
  - THROMBOCYTOPENIA [None]
